FAERS Safety Report 7046864-7 (Version None)
Quarter: 2010Q3

REPORT INFORMATION
  Report Type: 
  Country: None (occurrence: None)
  Receive Date: 20100914
  Receipt Date: 20100826
  Transmission Date: 20110219
  Serious: Yes (Hospitalization)
  Sender: FDA-Public Use
  Company Number: GAM-225-10-US

PATIENT
  Age: 62 Year
  Sex: Male

DRUGS (9)
  1. OCTAGAM [Suspect]
     Indication: DEMYELINATING POLYNEUROPATHY
     Dosage: 60GM X 2 DAYS AS NEEDED
     Dates: start: 20100702
  2. OCTAGAM [Suspect]
     Indication: DEMYELINATING POLYNEUROPATHY
     Dosage: 60GM X 2 DAYS AS NEEDED
     Dates: start: 20100826
  3. WARFARIN [Concomitant]
  4. FOLIC ACID [Concomitant]
  5. METHOTREXATE [Concomitant]
  6. PREDNISONE [Concomitant]
  7. SINGULAIR [Concomitant]
  8. LOPRESSOR (METROPROLOL) [Concomitant]
  9. ADVAIR DISKUS 100/50 [Concomitant]

REACTIONS (10)
  - APNOEA [None]
  - ARTHRALGIA [None]
  - ASTHENIA [None]
  - BLOOD PRESSURE INCREASED [None]
  - DEEP VEIN THROMBOSIS [None]
  - FATIGUE [None]
  - INFUSION RELATED REACTION [None]
  - OXYGEN SATURATION DECREASED [None]
  - RESPIRATORY FAILURE [None]
  - SYNCOPE [None]
